FAERS Safety Report 4849674-1 (Version None)
Quarter: 2005Q4

REPORT INFORMATION
  Report Type: 
  Country: None (occurrence: None)
  Receive Date: 20051207
  Receipt Date: 20051124
  Transmission Date: 20060501
  Serious: Yes (Hospitalization)
  Sender: FDA-Public Use
  Company Number: GBR-2005-0001997

PATIENT
  Age: 1 Day
  Sex: Female
  Weight: 2.7 kg

DRUGS (2)
  1. MORPHINE SULFATE [Suspect]
     Indication: ARTHRALGIA
     Dosage: 90 MG, DAILY, TRANSPLACENTAL
     Route: 064
     Dates: end: 20050616
  2. SYNTOCINON [Concomitant]

REACTIONS (6)
  - DRUG EXPOSURE DURING PREGNANCY [None]
  - MOANING [None]
  - NEONATAL DISORDER [None]
  - NEONATAL RESPIRATORY DISTRESS SYNDROME [None]
  - PNEUMOTHORAX [None]
  - VENTRICULAR SEPTAL DEFECT [None]
